FAERS Safety Report 4652858-9 (Version None)
Quarter: 2005Q2

REPORT INFORMATION
  Report Type: 
  Country: None (occurrence: None)
  Receive Date: 20050502
  Receipt Date: 20050418
  Transmission Date: 20051028
  Serious: Yes (Other)
  Sender: FDA-Public Use
  Company Number: ENT 2005-0046

PATIENT
  Age: 77 Year
  Sex: Male

DRUGS (5)
  1. COMTAN [Suspect]
     Indication: PARKINSON'S DISEASE
     Dosage: 6 G, ORAL
     Route: 048
     Dates: start: 20010101
  2. SINEMET [Concomitant]
  3. TRIVASTAL [Concomitant]
  4. REQUIP [Concomitant]
  5. PHOSPHORUS P32 [Concomitant]

REACTIONS (3)
  - HYPERHIDROSIS [None]
  - POLLAKIURIA [None]
  - WEIGHT DECREASED [None]
